FAERS Safety Report 7954444-1 (Version None)
Quarter: 2011Q4

REPORT INFORMATION
  Report Type: 
  Country: None (occurrence: None)
  Receive Date: 20111202
  Receipt Date: 20111129
  Transmission Date: 20120403
  Serious: No
  Sender: FDA-Public Use
  Company Number: DE-GLAXOSMITHKLINE-B0765755A

PATIENT
  Sex: Female

DRUGS (1)
  1. SUMATRIPTAN-RATIOPHARM [Suspect]
     Indication: MIGRAINE
     Route: 065
     Dates: start: 20030101

REACTIONS (2)
  - DYSPNOEA [None]
  - CHEST DISCOMFORT [None]
